FAERS Safety Report 6970124-3 (Version None)
Quarter: 2010Q3

REPORT INFORMATION
  Report Type: 
  Country: None (occurrence: None)
  Receive Date: 20100908
  Receipt Date: 20100826
  Transmission Date: 20110219
  Serious: Yes (Other)
  Sender: FDA-Public Use
  Company Number: US-ELI_LILLY_AND_COMPANY-US201007000089

PATIENT
  Age: 48 Year
  Sex: Male

DRUGS (7)
  1. ZYPREXA [Suspect]
     Dosage: UNK, UNKNOWN
  2. ZYPREXA [Suspect]
     Dosage: UNK, UNKNOWN
  3. HALDOL [Concomitant]
     Dosage: 20 MG, 2/D
  4. HALDOL [Concomitant]
     Dosage: 250 MG, OTHER
     Route: 030
  5. HALDOL [Concomitant]
     Dosage: 300 MG, OTHER
     Route: 030
  6. ABILIFY [Concomitant]
     Dates: end: 20050302
  7. GEODON [Concomitant]
     Dosage: 200 MG, UNK

REACTIONS (4)
  - GENERAL PHYSICAL HEALTH DETERIORATION [None]
  - OVERDOSE [None]
  - PSYCHIATRIC DECOMPENSATION [None]
  - WEIGHT INCREASED [None]
